FAERS Safety Report 5212204-9 (Version None)
Quarter: 2006Q4

REPORT INFORMATION
  Report Type: 
  Country: None (occurrence: None)
  Receive Date: 20061120
  Receipt Date: 20060827
  Transmission Date: 20070319
  Serious: Yes (Other)
  Sender: FDA-Public Use
  Company Number: US-2006-029481

PATIENT
  Age: 32 Year
  Sex: Female
  Weight: 59 kg

DRUGS (1)
  1. ULTRAVIST (PHARMACY BULK) [Suspect]
     Indication: COMPUTERISED TOMOGRAM ABDOMEN
     Dosage: 110 ML, 1 DOSE, INTRAVENOUS
     Route: 042
     Dates: start: 20060824, end: 20060824

REACTIONS (4)
  - ERYTHEMA [None]
  - HEARING IMPAIRED [None]
  - HEART RATE DECREASED [None]
  - HYPOTENSION [None]
